FAERS Safety Report 6256090-7 (Version None)
Quarter: 2009Q3

REPORT INFORMATION
  Report Type: 
  Country: None (occurrence: None)
  Receive Date: 20090706
  Receipt Date: 20090624
  Transmission Date: 20100115
  Serious: Yes (Death, Other)
  Sender: FDA-Public Use
  Company Number: CA-WYE-H09896309

PATIENT
  Sex: Female

DRUGS (2)
  1. ADVIL [Suspect]
     Indication: PYREXIA
     Dosage: UNKNOWN
     Route: 048
     Dates: start: 20090615, end: 20090615
  2. ADVIL [Suspect]
     Indication: PAIN IN EXTREMITY

REACTIONS (4)
  - ABDOMINAL PAIN UPPER [None]
  - CHEST PAIN [None]
  - CIRCULATORY COLLAPSE [None]
  - INFLUENZA [None]
